FAERS Safety Report 7218650-6 (Version None)
Quarter: 2011Q1

REPORT INFORMATION
  Report Type: 
  Country: None (occurrence: None)
  Receive Date: 20110110
  Receipt Date: 20110105
  Transmission Date: 20110831
  Serious: Yes (Hospitalization, Other)
  Sender: FDA-Public Use
  Company Number: BR-ABBOTT-10P-020-0685443-00

PATIENT
  Sex: Female
  Weight: 80 kg

DRUGS (2)
  1. HUMIRA [Suspect]
     Indication: RHEUMATOID ARTHRITIS
     Route: 058
     Dates: start: 20080701, end: 20101001
  2. HUMIRA [Suspect]
     Dates: start: 20101208

REACTIONS (2)
  - DEPRESSION [None]
  - DACRYOSTENOSIS ACQUIRED [None]
